FAERS Safety Report 14929837 (Version 1)
Quarter: 2018Q2

REPORT INFORMATION
  Report Type: Spontaneous
  Country: DE (occurrence: DE)
  Receive Date: 20180523
  Receipt Date: 20180523
  Transmission Date: 20180711
  Serious: Yes (Other)
  Sender: FDA-Public Use
  Company Number: DE-MYLANLABS-2018M1033189

PATIENT
  Age: 57 Year
  Sex: Male

DRUGS (11)
  1. ENDOXAN                            /00021102/ [Suspect]
     Active Substance: CYCLOPHOSPHAMIDE
     Indication: PLASMA CELL MYELOMA
     Dosage: ON DAY -3 AND -2 (IMC REGIMEN)
     Route: 041
  2. IDARUBICIN [Suspect]
     Active Substance: IDARUBICIN
     Indication: PLASMA CELL MYELOMA
     Dosage: ON DAYS -13,-12 AND -11 (IMC REGIMEN)
     Route: 041
  3. DEXAMETHASONE. [Concomitant]
     Active Substance: DEXAMETHASONE
     Indication: PLASMA CELL MYELOMA
     Dosage: 8X40 MG (VAD REGIMEN)
     Route: 048
  4. DEXAMETHASONE. [Concomitant]
     Active Substance: DEXAMETHASONE
     Dosage: 8X40 MG (VID REGIMEN)
     Route: 048
  5. ADRIAMYCIN [Concomitant]
     Active Substance: DOXORUBICIN HYDROCHLORIDE
     Indication: PLASMA CELL MYELOMA
     Dosage: 4 X 9 MG/M2 (VAD REGIMEN)
     Route: 042
  6. VINCRISTINE [Concomitant]
     Active Substance: VINCRISTINE
     Dosage: 4 X 0.4 MG (VAD REGIMEN)
     Route: 042
  7. MESNA. [Concomitant]
     Active Substance: MESNA
     Indication: PRODUCT USED FOR UNKNOWN INDICATION
     Dosage: ON DAY -3 AND -2 (ALONG WITH IMC REGIMEN)
  8. VINCRISTINE [Concomitant]
     Active Substance: VINCRISTINE
     Indication: PLASMA CELL MYELOMA
     Dosage: ON DAY 1 (VID REGIMEN)
     Route: 040
  9. MELPHALAN. [Suspect]
     Active Substance: MELPHALAN
     Indication: PLASMA CELL MYELOMA
     Dosage: ON DAYS -5 AND -4 (IMC REGIMEN)
     Route: 041
  10. IDARUBICIN [Suspect]
     Active Substance: IDARUBICIN
     Dosage: 4X10 MG/M2 (VAD REGIMEN)
     Route: 042
  11. ENDOXAN                            /00021102/ [Suspect]
     Active Substance: CYCLOPHOSPHAMIDE
     Indication: HAEMATOPOIETIC STEM CELL MOBILISATION
     Dosage: UNK

REACTIONS (3)
  - Pyrexia [Unknown]
  - Mucosal inflammation [Unknown]
  - Haematotoxicity [Unknown]
